FAERS Safety Report 24071189 (Version 4)
Quarter: 2025Q3

REPORT INFORMATION
  Report Type: Report from Study
  Country: CA (occurrence: CA)
  Receive Date: 20240710
  Receipt Date: 20250805
  Transmission Date: 20251021
  Serious: Yes (Hospitalization, Other)
  Sender: ROCHE
  Company Number: CA-ROCHE-3541126

PATIENT
  Age: 52 Year
  Sex: Male
  Weight: 54 kg

DRUGS (2)
  1. EVRYSDI [Suspect]
     Active Substance: RISDIPLAM
     Indication: Spinal muscular atrophy
     Route: 048
     Dates: start: 202010
  2. EVRYSDI [Suspect]
     Active Substance: RISDIPLAM
     Route: 048
     Dates: start: 20201103

REACTIONS (15)
  - Cholecystitis [Unknown]
  - Biliary colic [Unknown]
  - Biliary sepsis [Unknown]
  - Intra-abdominal haemorrhage [Unknown]
  - Pneumonia [Unknown]
  - Vascular device infection [Unknown]
  - Urinary tract infection [Unknown]
  - Renal failure [Unknown]
  - Pain [Unknown]
  - Drug dependence [Unknown]
  - Prostatitis [Unknown]
  - Systemic inflammatory response syndrome [Unknown]
  - Ulcer [Unknown]
  - Bile duct stone [Unknown]
  - Biliary dilatation [Unknown]
